FAERS Safety Report 7579574-8 (Version None)
Quarter: 2011Q2

REPORT INFORMATION
  Report Type: 
  Country: None (occurrence: None)
  Receive Date: 20110629
  Receipt Date: 20110620
  Transmission Date: 20111010
  Serious: Yes (Hospitalization, Other)
  Sender: FDA-Public Use
  Company Number: CN-JNJFOC-20110609992

PATIENT
  Age: 84 Year
  Sex: Male

DRUGS (1)
  1. SPORANOX [Suspect]
     Indication: PRURITUS
     Route: 048
     Dates: start: 20110605, end: 20110609

REACTIONS (3)
  - SELF-MEDICATION [None]
  - ABDOMINAL DISCOMFORT [None]
  - DRUG HYPERSENSITIVITY [None]
